FAERS Safety Report 9871679 (Version 1)
Quarter: 2014Q1

REPORT INFORMATION
  Report Type: Spontaneous
  Country: US (occurrence: US)
  Receive Date: 20140205
  Receipt Date: 20140205
  Transmission Date: 20141002
  Serious: No
  Sender: FDA-Public Use
  Company Number: US-SA-2013SA136132

PATIENT
  Age: 3 Year
  Sex: Male

DRUGS (2)
  1. ALLEGRA [Suspect]
     Indication: HOUSE DUST ALLERGY
     Route: 048
     Dates: start: 201205
  2. HYDROCORTISONE [Concomitant]

REACTIONS (1)
  - Therapeutic response decreased [Unknown]
